FAERS Safety Report 4291336-6 (Version None)
Quarter: 2004Q1

REPORT INFORMATION
  Report Type: 
  Country: None (occurrence: None)
  Receive Date: 20040211
  Receipt Date: 20040204
  Transmission Date: 20041129
  Serious: Yes (Hospitalization)
  Sender: FDA-Public Use
  Company Number: 200410890US

PATIENT
  Age: 71 Year
  Sex: Female

DRUGS (7)
  1. LANTUS [Suspect]
     Indication: DIABETES MELLITUS
     Dosage: DOSE UNIT: UNITS
  2. PLAVIX [Concomitant]
     Dosage: DOSE: UNK
  3. TENORMIN [Concomitant]
     Dosage: DOSE: UNK
  4. DIOVAN HCT [Concomitant]
     Dosage: DOSE: UNK
  5. ASPIRIN [Concomitant]
     Dosage: DOSE: UNK
  6. TYLENOL (CAPLET) [Concomitant]
     Dosage: DOSE: UNK
  7. ZOFRAN [Concomitant]
     Dosage: DOSE: UNK

REACTIONS (5)
  - BLOOD GLUCOSE FLUCTUATION [None]
  - CEREBROVASCULAR ACCIDENT [None]
  - DIABETES MELLITUS [None]
  - TREATMENT NONCOMPLIANCE [None]
  - URINARY TRACT INFECTION [None]
